FAERS Safety Report 8036028 (Version 5)
Quarter: 2013Q2

REPORT INFORMATION
  Report Type: Spontaneous
  Country: US (occurrence: US)
  Receive Date: 20110715
  Receipt Date: 20130515
  Transmission Date: 20140414
  Serious: Yes (Hospitalization, Other)
  Sender: FDA-Public Use
  Company Number: US-ASTRAZENECA-2011SE40554

PATIENT
  Age: 568 Month
  Sex: Female
  Weight: 83.9 kg

DRUGS (19)
  1. NEXIUM [Suspect]
     Indication: GASTROOESOPHAGEAL REFLUX DISEASE
     Route: 048
     Dates: start: 2001, end: 2011
  2. NEXIUM [Suspect]
     Indication: GASTROOESOPHAGEAL REFLUX DISEASE
     Route: 048
     Dates: start: 2011
  3. SEROQUEL [Suspect]
     Indication: BIPOLAR DISORDER
     Route: 048
  4. SEROQUEL [Suspect]
     Indication: BIPOLAR DISORDER
     Route: 048
     Dates: start: 2012
  5. SYMBICORT PMDI [Suspect]
     Indication: CHRONIC OBSTRUCTIVE PULMONARY DISEASE
     Dosage: 160/4.5 MCG BID
     Route: 055
     Dates: start: 2011
  6. LISINOPRIL [Suspect]
     Indication: BLOOD PRESSURE
     Route: 048
     Dates: end: 201302
  7. PROPANOLOL [Concomitant]
     Indication: MIGRAINE
     Route: 048
     Dates: start: 2007
  8. PROPANOLOL [Concomitant]
     Indication: BLOOD PRESSURE
     Route: 048
     Dates: start: 2007
  9. TOPAMAX [Concomitant]
     Indication: MIGRAINE
     Route: 048
     Dates: start: 2005
  10. CLIMARAPRO PATCH [Concomitant]
     Indication: MIGRAINE
     Dosage: 0.05-0.015 WEEK
     Route: 061
     Dates: start: 2005
  11. LAMICTAL [Concomitant]
     Indication: MIGRAINE
     Route: 048
     Dates: start: 2012
  12. FLONASE [Concomitant]
     Indication: CHRONIC OBSTRUCTIVE PULMONARY DISEASE
     Dosage: 2 PUFFS DAILY
     Route: 055
     Dates: start: 2011
  13. CYMBALTA [Concomitant]
     Indication: DEPRESSION
     Route: 048
     Dates: start: 201201
  14. LEVOXYL [Concomitant]
     Indication: THYROID DISORDER
     Route: 048
     Dates: start: 1997
  15. MAXALT [Concomitant]
     Indication: MIGRAINE
     Route: 048
  16. PHENERGAN [Concomitant]
     Indication: ABDOMINAL DISCOMFORT
     Dosage: UNKNOWN DOSE AS REQUIRED
     Route: 048
  17. RESTORIL [Concomitant]
     Indication: SLEEP DISORDER
     Route: 048
     Dates: start: 201211
  18. DIOVAN [Concomitant]
     Indication: HYPERTENSION
     Dosage: 80/12.5 MG DAILY
     Route: 048
     Dates: start: 201302
  19. MECLIZINE [Concomitant]

REACTIONS (25)
  - Upper limb fracture [Unknown]
  - Rotator cuff syndrome [Unknown]
  - Muscle rupture [Unknown]
  - Fall [Unknown]
  - Lower limb fracture [Unknown]
  - Cardiac disorder [Unknown]
  - Face crushing [Unknown]
  - Joint injury [Unknown]
  - Ankle fracture [Unknown]
  - Migraine [Unknown]
  - Hypotension [Unknown]
  - Bronchitis chronic [Unknown]
  - Bipolar disorder [Unknown]
  - Lactose intolerance [Unknown]
  - Cardiomegaly [Unknown]
  - Meniere^s disease [Unknown]
  - Chronic obstructive pulmonary disease [Unknown]
  - Bipolar I disorder [Unknown]
  - Arthropathy [Unknown]
  - Rhinitis [Unknown]
  - Diarrhoea [Unknown]
  - Abdominal pain upper [Unknown]
  - Vomiting [Unknown]
  - Intentional drug misuse [Unknown]
  - Drug dose omission [Unknown]
